FAERS Safety Report 9714626 (Version 1)
Quarter: 2013Q4

REPORT INFORMATION
  Report Type: Spontaneous
  Country: GB (occurrence: GB)
  Receive Date: 20131126
  Receipt Date: 20131126
  Transmission Date: 20140711
  Serious: Yes (Death, Other)
  Sender: FDA-Public Use
  Company Number: GB-MYLANLABS-2013S1025799

PATIENT
  Sex: 0

DRUGS (1)
  1. MIRTAZAPINE [Suspect]
     Route: 064

REACTIONS (2)
  - Exposure during pregnancy [Recovered/Resolved]
  - Stillbirth [Fatal]
